FAERS Safety Report 4962122-6 (Version None)
Quarter: 2006Q2

REPORT INFORMATION
  Report Type: 
  Country: None (occurrence: None)
  Receive Date: 20060404
  Receipt Date: 20050331
  Transmission Date: 20061013
  Serious: Yes (Hospitalization)
  Sender: FDA-Public Use
  Company Number: US-MERCK-0504USA00215

PATIENT
  Age: 44 Year
  Sex: Male
  Weight: 66 kg

DRUGS (4)
  1. VIOXX [Suspect]
     Indication: OSTEOARTHRITIS
     Route: 048
     Dates: start: 19990601, end: 20031106
  2. VIOXX [Suspect]
     Route: 048
  3. VIOXX [Suspect]
     Indication: ANKYLOSING SPONDYLITIS
     Route: 048
     Dates: start: 19990601, end: 20031106
  4. VIOXX [Suspect]
     Route: 048

REACTIONS (22)
  - ABDOMINAL DISCOMFORT [None]
  - ANGINA PECTORIS [None]
  - BRAIN STEM INFARCTION [None]
  - BRONCHITIS [None]
  - CEREBROVASCULAR ACCIDENT [None]
  - COSTOCHONDRITIS [None]
  - DEPRESSION [None]
  - DIPLOPIA [None]
  - GASTROOESOPHAGEAL REFLUX DISEASE [None]
  - HAEMATURIA [None]
  - HYPERLIPIDAEMIA [None]
  - INTERVERTEBRAL DISC DEGENERATION [None]
  - INTERVERTEBRAL DISC DISORDER [None]
  - LIP BLISTER [None]
  - LUMBAR RADICULOPATHY [None]
  - MIGRAINE [None]
  - NEPHROLITHIASIS [None]
  - NOCTURIA [None]
  - PROSTATITIS [None]
  - RESPIRATORY TRACT INFECTION [None]
  - SINUSITIS [None]
  - UPPER RESPIRATORY TRACT INFECTION [None]
